FAERS Safety Report 8625122-0 (Version None)
Quarter: 2012Q3

REPORT INFORMATION
  Report Type: 
  Country: None (occurrence: None)
  Receive Date: 20120827
  Receipt Date: 20120820
  Transmission Date: 20120928
  Serious: Yes (Hospitalization, Other)
  Sender: FDA-Public Use
  Company Number: BR-GLAXOSMITHKLINE-A0990994A

PATIENT
  Sex: Male
  Weight: 75 kg

DRUGS (3)
  1. MODURETIC 5-50 [Concomitant]
     Dosage: .25TAB PER DAY
     Route: 048
     Dates: start: 20090101
  2. FLUTICASONE PROPIONATE/SALMETEROL [Suspect]
     Indication: DYSPNOEA
     Dosage: 1PUFF PER DAY
     Route: 055
     Dates: start: 20110101
  3. BECLOMETHASONE DIPROPIONATE [Concomitant]
     Dosage: 1PUFF PER DAY
     Route: 055
     Dates: start: 20110101

REACTIONS (4)
  - GASTRIC NEOPLASM [None]
  - COUGH [None]
  - ASTHMATIC CRISIS [None]
  - SUTURE RUPTURE [None]
